FAERS Safety Report 9334478 (Version 2)
Quarter: 2013Q4

REPORT INFORMATION
  Report Type: Spontaneous
  Country: US (occurrence: US)
  Receive Date: 20130606
  Receipt Date: 20131008
  Transmission Date: 20140711
  Serious: Yes (Other)
  Sender: FDA-Public Use
  Company Number: US-AMGEN-USASP2013035452

PATIENT
  Age: 44 Year
  Sex: Female

DRUGS (9)
  1. XGEVA [Suspect]
     Indication: BREAST CANCER METASTATIC
     Dosage: 120 MG, Q4WK
     Route: 058
     Dates: start: 20130104
  2. XGEVA [Suspect]
     Indication: METASTASES TO BONE
  3. TAXOL [Concomitant]
     Indication: BREAST CANCER METASTATIC
     Dosage: 142 MG, UNK
     Route: 042
     Dates: start: 20130108, end: 20130527
  4. ATIVAN [Concomitant]
  5. LABETALOL [Concomitant]
  6. CALCIUM CARBONATE [Concomitant]
  7. ERGOCALCIFEROL [Concomitant]
  8. CALCITRIOL [Concomitant]
  9. VERAMYST [Concomitant]

REACTIONS (1)
  - Hypocalcaemia [Recovered/Resolved]
